FAERS Safety Report 7086148-4 (Version None)
Quarter: 2010Q4

REPORT INFORMATION
  Report Type: 
  Country: None (occurrence: None)
  Receive Date: 20101105
  Receipt Date: 20101026
  Transmission Date: 20110411
  Serious: Yes (Hospitalization)
  Sender: FDA-Public Use
  Company Number: KR-SANOFI-AVENTIS-2010SA065530

PATIENT
  Age: 65 Year
  Sex: Female

DRUGS (7)
  1. PREDNISOLONE [Suspect]
     Indication: RHEUMATOID ARTHRITIS
     Route: 065
  2. METHOTREXATE [Suspect]
     Indication: RHEUMATOID ARTHRITIS
     Route: 065
  3. HYDROXYCHLOROQUINE [Suspect]
     Indication: RHEUMATOID ARTHRITIS
     Route: 065
  4. SULFASALAZINE [Suspect]
     Indication: RHEUMATOID ARTHRITIS
     Route: 065
  5. ISONIAZID [Suspect]
     Route: 065
  6. RIFAMPICIN [Suspect]
     Route: 065
  7. ETHAMBUTOL HYDROCHLORIDE [Suspect]
     Route: 065

REACTIONS (9)
  - BLOOD PRESSURE INCREASED [None]
  - COUGH [None]
  - DISSEMINATED TUBERCULOSIS [None]
  - DRUG INEFFECTIVE [None]
  - JOINT SWELLING [None]
  - NECROTISING FASCIITIS [None]
  - NORMOCHROMIC NORMOCYTIC ANAEMIA [None]
  - PYREXIA [None]
  - WOUND SECRETION [None]
